FAERS Safety Report 4935021-3 (Version None)
Quarter: 2006Q1

REPORT INFORMATION
  Report Type: 
  Country: None (occurrence: None)
  Receive Date: 20060306
  Receipt Date: 20060306
  Transmission Date: 20060701
  Serious: Yes (Death)
  Sender: FDA-Public Use
  Company Number: None

PATIENT
  Age: 58 Year
  Sex: Female
  Weight: 80 kg

DRUGS (2)
  1. LOVENOX [Suspect]
     Indication: CHEST PAIN
     Dosage: 80MG Q12H
     Dates: start: 20060206, end: 20060214
  2. ASPIRIN [Suspect]
     Indication: CHEST PAIN
     Dosage: 325 MG DAILY
     Dates: start: 20060206, end: 20060214

REACTIONS (4)
  - BRAIN DEATH [None]
  - CARDIO-RESPIRATORY ARREST [None]
  - CEREBRAL HAEMORRHAGE [None]
  - LOSS OF CONSCIOUSNESS [None]
